FAERS Safety Report 6322846-5 (Version None)
Quarter: 2009Q3

REPORT INFORMATION
  Report Type: 
  Country: None (occurrence: None)
  Receive Date: 20090824
  Receipt Date: 20090811
  Transmission Date: 20100115
  Serious: Yes (Other)
  Sender: FDA-Public Use
  Company Number: PHHY2009MX34123

PATIENT

DRUGS (2)
  1. ZELMAC [Suspect]
     Indication: IRRITABLE BOWEL SYNDROME
     Dosage: 6 MG DAILY
     Route: 064
     Dates: start: 20070801, end: 20071101
  2. ZELMAC [Suspect]
     Dosage: 6 MG DAILY
     Route: 064
     Dates: start: 20080801, end: 20080801

REACTIONS (4)
  - DRUG EXPOSURE DURING PREGNANCY [None]
  - HYPERBILIRUBINAEMIA NEONATAL [None]
  - INCUBATOR THERAPY [None]
  - TRANSIENT TACHYPNOEA OF THE NEWBORN [None]
